FAERS Safety Report 8171213 (Version 2)
Quarter: 2013Q3

REPORT INFORMATION
  Report Type: Spontaneous
  Country: SE (occurrence: SE)
  Receive Date: 20111006
  Receipt Date: 20130822
  Transmission Date: 20140515
  Serious: Yes (Hospitalization)
  Sender: FDA-Public Use
  Company Number: SE-JNJFOC-20111001269

PATIENT
  Age: 51 Year
  Sex: Female

DRUGS (4)
  1. SIMPONI [Suspect]
     Indication: RHEUMATOID ARTHRITIS
     Route: 058
     Dates: start: 20110302
  2. ENALAPRIL [Concomitant]
  3. PREDNISOLON [Concomitant]
  4. METHOTREXATE [Concomitant]

REACTIONS (1)
  - Myocardial infarction [Recovering/Resolving]
